FAERS Safety Report 9457323 (Version 1)
Quarter: 2013Q3

REPORT INFORMATION
  Report Type: Report from Study
  Country: AR (occurrence: AR)
  Receive Date: 20130814
  Receipt Date: 20130814
  Transmission Date: 20140515
  Serious: Yes (Other)
  Sender: FDA-Public Use
  Company Number: PHHY2013AR086967

PATIENT
  Age: 76 Year
  Sex: Female

DRUGS (3)
  1. DIOVAN [Suspect]
     Indication: HYPERTENSION
     Dosage: 160 MG, DAILY
     Route: 048
  2. NAPROXEN 500 [Concomitant]
     Dosage: 500 UKN, UNK
  3. DIOXAFLEX CB PLUS [Concomitant]
     Dosage: UNK UKN, UNK

REACTIONS (2)
  - Neoplasm [Recovering/Resolving]
  - Gait disturbance [Unknown]
